FAERS Safety Report 5491718-0 (Version None)
Quarter: 2007Q4

REPORT INFORMATION
  Report Type: 
  Country: None (occurrence: None)
  Receive Date: 20071022
  Receipt Date: 20071015
  Transmission Date: 20080405
  Serious: Yes (Other)
  Sender: FDA-Public Use
  Company Number: US-AVENTIS-200717323US

PATIENT
  Sex: Female

DRUGS (7)
  1. LANTUS [Suspect]
     Dosage: DOSE: 10 UNITS GRADUALLY INCREASED TO 27 UNITS
     Route: 051
     Dates: start: 20070719
  2. APIDRA [Suspect]
     Dosage: FREQUENCY: BEFORE MEALS
     Route: 051
     Dates: start: 20070901
  3. OPTICLIK (INSULIN INJECTION PEN) [Suspect]
     Dates: start: 20070901
  4. TOPAMAX [Concomitant]
     Dosage: DOSE: UNK
  5. LEVOXYL [Concomitant]
     Dosage: DOSE: UNK
  6. SEROQUEL                           /01270902/ [Concomitant]
     Dosage: DOSE: UNK
  7. LYRICA [Concomitant]
     Dosage: DOSE: UNK

REACTIONS (7)
  - DIZZINESS [None]
  - HALLUCINATION [None]
  - HALLUCINATION, VISUAL [None]
  - HALLUCINATIONS, MIXED [None]
  - SENSORY DISTURBANCE [None]
  - SOMATIC HALLUCINATION [None]
  - VISUAL DISTURBANCE [None]
